FAERS Safety Report 23675613 (Version 2)
Quarter: 2025Q1

REPORT INFORMATION
  Report Type: Report from Study
  Country: US (occurrence: US)
  Receive Date: 20240327
  Receipt Date: 20250123
  Transmission Date: 20250409
  Serious: Yes (Other)
  Sender: SANOFI AVENTIS
  Company Number: US-SANOFI-01882920

PATIENT
  Age: 84 Year
  Sex: Female

DRUGS (4)
  1. INSULIN GLARGINE [Suspect]
     Active Substance: INSULIN GLARGINE
     Indication: Type 2 diabetes mellitus
     Dosage: 24 IU, QD
     Route: 058
     Dates: start: 202307
  2. INSULIN GLARGINE [Suspect]
     Active Substance: INSULIN GLARGINE
     Dosage: 3 UNITS EVERY MORNING AND 24 UNITS AT NIGHT
     Route: 058
     Dates: end: 202402
  3. INSULIN GLARGINE [Suspect]
     Active Substance: INSULIN GLARGINE
     Dosage: 28 IU, QD
  4. JARDIANCE [Concomitant]
     Active Substance: EMPAGLIFLOZIN

REACTIONS (14)
  - Ketoacidosis [Unknown]
  - Musculoskeletal discomfort [Not Recovered/Not Resolved]
  - Rash macular [Unknown]
  - Dizziness [Unknown]
  - Cardiac disorder [Unknown]
  - Cough [Unknown]
  - Injection site bruising [Unknown]
  - Injection site pain [Unknown]
  - Blood glucose increased [Unknown]
  - Injection site haemorrhage [Unknown]
  - Visual impairment [Unknown]
  - Injury associated with device [Unknown]
  - Product storage error [Unknown]
  - Off label use [Unknown]

NARRATIVE: CASE EVENT DATE: 20230101
